FAERS Safety Report 8843198 (Version 1)
Quarter: 2012Q4

REPORT INFORMATION
  Report Type: 
  Country: US (occurrence: US)
  Receive Date: 20121016
  Receipt Date: 20121016
  Transmission Date: 20130627
  Serious: No
  Sender: FDA-Public Use
  Company Number: US-009507513-1210USA004332

PATIENT
  Sex: Female

DRUGS (3)
  1. VICTRELIS [Suspect]
     Indication: HEPATITIS C
     Dosage: UNK
     Dates: start: 20120812
  2. PEG-INTRON [Suspect]
     Indication: HEPATITIS C
     Dosage: UNK
     Dates: start: 20120714
  3. RIBAVIRIN [Suspect]
     Indication: HEPATITIS C
     Dosage: UNK
     Dates: start: 20120714

REACTIONS (7)
  - Oral discomfort [Unknown]
  - Wrong technique in drug usage process [Unknown]
  - Swelling face [Unknown]
  - Odynophagia [Unknown]
  - Tooth fracture [Unknown]
  - Red blood cell count decreased [Unknown]
  - Dysgeusia [Unknown]
